FAERS Safety Report 19093994 (Version 5)
Quarter: 2021Q2

REPORT INFORMATION
  Report Type: Report from Study
  Country: NL (occurrence: NL)
  Receive Date: 20210405
  Receipt Date: 20210507
  Transmission Date: 20210717
  Serious: Yes (Hospitalization)
  Sender: FDA-Public Use
  Company Number: NL-ROCHE-2800784

PATIENT
  Age: 71 Year
  Sex: Female
  Weight: 61.1 kg

DRUGS (8)
  1. NADROPARINE [Concomitant]
     Active Substance: NADROPARIN
     Indication: ATRIAL FLUTTER
  2. NADROPARINE [Concomitant]
     Active Substance: NADROPARIN
     Indication: PULMONARY EMBOLISM
     Route: 058
     Dates: start: 20210111, end: 20210226
  3. MTIG 7192A [Suspect]
     Active Substance: TIRAGOLUMAB
     Indication: NON-SMALL CELL LUNG CANCER
     Dosage: MOST RECENT DOSE OF TIRAGOLUMAB PRIOR TO SAE: 03/FEB/2021
     Route: 042
     Dates: start: 20201130
  4. CHOLECALCIFEROL [Concomitant]
     Active Substance: CHOLECALCIFEROL
     Indication: VITAMIN D DECREASED
     Route: 048
     Dates: start: 20181005
  5. SOTALOL. [Concomitant]
     Active Substance: SOTALOL
     Indication: VENTRICULAR EXTRASYSTOLES
     Route: 048
     Dates: start: 20150122
  6. CODEINE [Concomitant]
     Active Substance: CODEINE
     Indication: COUGH
     Route: 048
     Dates: start: 20210125
  7. ATEZOLIZUMAB. [Suspect]
     Active Substance: ATEZOLIZUMAB
     Indication: NON-SMALL CELL LUNG CANCER
     Dosage: MOST RECENT DOSE OF ATEZOLIZUMAB PRIOR TO SAE (1200 MG): 03/FEB/2021
     Route: 042
     Dates: start: 20201130
  8. LEVOTHYROXINE. [Concomitant]
     Active Substance: LEVOTHYROXINE
     Indication: HYPOTHYROIDISM
     Route: 048
     Dates: start: 20210309, end: 20210422

REACTIONS (1)
  - Nephrotic syndrome [Not Recovered/Not Resolved]

NARRATIVE: CASE EVENT DATE: 20210322
